FAERS Safety Report 10571677 (Version 3)
Quarter: 2017Q1

REPORT INFORMATION
  Report Type: Spontaneous
  Country: US (occurrence: US)
  Receive Date: 20141107
  Receipt Date: 20170223
  Transmission Date: 20170428
  Serious: Yes (Hospitalization, Other)
  Sender: FDA-Public Use
  Company Number: US-BAYER-2014-163403

PATIENT
  Age: 32 Year
  Sex: Female

DRUGS (2)
  1. AMPICILLIN [Concomitant]
     Active Substance: AMPICILLIN
  2. MIRENA [Suspect]
     Active Substance: LEVONORGESTREL
     Indication: CONTRACEPTION
     Dosage: 20 MCG/24HR, CONT
     Route: 015
     Dates: start: 20080410, end: 20100609

REACTIONS (10)
  - Injury [None]
  - Pelvic pain [None]
  - Pain [None]
  - Pregnancy with contraceptive device [None]
  - Device failure [None]
  - Abortion spontaneous [None]
  - Uterine perforation [None]
  - Drug ineffective [None]
  - Device issue [None]
  - Scar [None]

NARRATIVE: CASE EVENT DATE: 201006
